FAERS Safety Report 4842239-7 (Version None)
Quarter: 2005Q4

REPORT INFORMATION
  Report Type: 
  Country: None (occurrence: None)
  Receive Date: 20051129
  Receipt Date: 20051116
  Transmission Date: 20060501
  Serious: Yes (Hospitalization, Other)
  Sender: FDA-Public Use
  Company Number: 2005157467

PATIENT
  Age: 67 Year
  Sex: Female
  Weight: 136.0791 kg

DRUGS (10)
  1. XALATAN [Suspect]
     Indication: GLAUCOMA
     Dosage: 1 DROP EACH EYE DAILY (1.5 MCG), OPHTHALMIC
     Route: 047
  2. AMIODARONE HCL [Suspect]
     Indication: CARDIAC DISORDER
     Dates: start: 20050531, end: 20050606
  3. INSULIN [Concomitant]
  4. LASIX [Concomitant]
  5. POTASSIUM (POTASSIUM) [Concomitant]
  6. VASOTEC [Concomitant]
  7. AMARYL [Concomitant]
  8. LOPRESSOR [Concomitant]
  9. COUMADIN [Concomitant]
  10. ACETAMINOPHEN [Concomitant]

REACTIONS (12)
  - AMNESIA [None]
  - BLINDNESS [None]
  - CARDIAC FIBRILLATION [None]
  - EYE DISORDER [None]
  - HEART RATE DECREASED [None]
  - HEART RATE INCREASED [None]
  - HYPERHIDROSIS [None]
  - PALPITATIONS [None]
  - RESPIRATORY DISORDER [None]
  - VISION BLURRED [None]
  - VISUAL DISTURBANCE [None]
  - WEIGHT DECREASED [None]
